FAERS Safety Report 4592307-2 (Version None)
Quarter: 2005Q1

REPORT INFORMATION
  Report Type: 
  Country: None (occurrence: None)
  Receive Date: 20050228
  Receipt Date: 20041130
  Transmission Date: 20050727
  Serious: No
  Sender: FDA-Public Use
  Company Number: US-BRISTOL-MYERS SQUIBB COMPANY-12779450

PATIENT
  Age: 12 Year
  Sex: Male
  Weight: 68 kg

DRUGS (2)
  1. ABILIFY [Suspect]
     Indication: TIC
     Dosage: INCREASED TO 12.5 MG/DAY, THEN 15 MG/DAY.
     Route: 048
     Dates: start: 20040201
  2. DOXYCYCLINE [Concomitant]

REACTIONS (1)
  - SPEECH DISORDER [None]
